FAERS Safety Report 11351382 (Version 1)
Quarter: 2015Q3

REPORT INFORMATION
  Report Type: Spontaneous
  Country: US (occurrence: US)
  Receive Date: 20150807
  Receipt Date: 20150807
  Transmission Date: 20151125
  Serious: No
  Sender: FDA-Public Use
  Company Number: US-JNJFOC-20141214954

PATIENT
  Sex: Female
  Weight: 61.24 kg

DRUGS (3)
  1. MENS ROGAINE EXTRA STRENGTH [Suspect]
     Active Substance: MINOXIDIL
     Indication: ALOPECIA
     Route: 061
  2. FOSAMAX [Concomitant]
     Active Substance: ALENDRONATE SODIUM
     Indication: OSTEOPOROSIS
     Route: 065
  3. MENS ROGAINE EXTRA STRENGTH [Suspect]
     Active Substance: MINOXIDIL
     Indication: ALOPECIA
     Route: 061

REACTIONS (6)
  - Inappropriate schedule of drug administration [Unknown]
  - Wrong patient received medication [Unknown]
  - Product odour abnormal [Unknown]
  - Pruritus [Recovered/Resolved]
  - Hair growth abnormal [Recovered/Resolved]
  - Dizziness [Recovered/Resolved]
